FAERS Safety Report 7735494-7 (Version None)
Quarter: 2011Q3

REPORT INFORMATION
  Report Type: 
  Country: None (occurrence: None)
  Receive Date: 20110907
  Receipt Date: 20110830
  Transmission Date: 20111222
  Serious: Yes (Other)
  Sender: FDA-Public Use
  Company Number: US-BAXTER-2011BH028192

PATIENT
  Age: 28 Year
  Sex: Female

DRUGS (5)
  1. ETOPOSIDE [Suspect]
     Indication: CHORIOCARCINOMA
     Route: 065
  2. VINCRISTINE SULFATE [Suspect]
     Indication: CHORIOCARCINOMA
     Route: 065
  3. CYCLOPHOSPHAMIDE [Suspect]
     Indication: CHORIOCARCINOMA
     Route: 065
  4. DACTINOMYCIN [Suspect]
     Indication: CHORIOCARCINOMA
     Route: 065
  5. METHOTREXATE [Suspect]
     Indication: CHORIOCARCINOMA
     Route: 065

REACTIONS (2)
  - PREMATURE DELIVERY [None]
  - MATERNAL EXPOSURE DURING PREGNANCY [None]
